FAERS Safety Report 17038457 (Version 2)
Quarter: 2019Q4

REPORT INFORMATION
  Report Type: Not Available
  Country: AU (occurrence: AU)
  Receive Date: 20191115
  Receipt Date: 20191209
  Transmission Date: 20200122
  Serious: Yes (Hospitalization)
  Sender: FDA-Public Use
  Company Number: AU-LEXICON PHARMACEUTICALS, INC-19-1606-01041

PATIENT
  Sex: Male

DRUGS (2)
  1. XERMELO [Suspect]
     Active Substance: TELOTRISTAT ETHYL
     Indication: CARCINOID SYNDROME
     Route: 065
     Dates: start: 2019, end: 2019
  2. XERMELO [Suspect]
     Active Substance: TELOTRISTAT ETHYL
     Route: 065
     Dates: start: 2019

REACTIONS (2)
  - Carcinoid crisis [Unknown]
  - Prescribed overdose [Unknown]

NARRATIVE: CASE EVENT DATE: 2019
